FAERS Safety Report 25192152 (Version 1)
Quarter: 2025Q2

REPORT INFORMATION
  Report Type: Other
  Country: CA (occurrence: CA)
  Receive Date: 20250414
  Receipt Date: 20250414
  Transmission Date: 20250716
  Serious: No
  Sender: TOLMAR
  Company Number: CA-TOLMAR, INC.-25CA058213

PATIENT

DRUGS (1)
  1. ELIGARD [Suspect]
     Active Substance: LEUPROLIDE ACETATE
     Indication: Product used for unknown indication
     Dosage: 45 MILLIGRAM, Q 6 MONTH
     Route: 058

REACTIONS (3)
  - Intercepted product preparation error [Unknown]
  - Device occlusion [Unknown]
  - Syringe issue [Unknown]
